FAERS Safety Report 7656954-3 (Version None)
Quarter: 2011Q3

REPORT INFORMATION
  Report Type: 
  Country: None (occurrence: None)
  Receive Date: 20110804
  Receipt Date: 20110802
  Transmission Date: 20111222
  Serious: Yes (Death)
  Sender: FDA-Public Use
  Company Number: MY-B.I. PHARMACEUTICALS,INC./RIDGEFIELD-2011-CS-00623MD

PATIENT
  Sex: Male

DRUGS (4)
  1. DRUG FOR CHOLESTEROL [Concomitant]
  2. SPIRIVA [Suspect]
     Indication: COUGH
  3. DRUG FOR HYPERTENSION [Concomitant]
  4. SPIRIVA [Suspect]
     Indication: DYSPNOEA
     Dosage: 2 PUF
     Route: 055

REACTIONS (1)
  - SMALL CELL LUNG CANCER STAGE UNSPECIFIED [None]
